FAERS Safety Report 24415751 (Version 5)
Quarter: 2025Q1

REPORT INFORMATION
  Report Type: Report from Study
  Country: US (occurrence: US)
  Receive Date: 20241009
  Receipt Date: 20250319
  Transmission Date: 20250408
  Serious: Yes (Hospitalization, Other)
  Sender: TAKEDA
  Company Number: US-TAKEDA-2023TUS041991

PATIENT
  Sex: Female
  Weight: 71 kg

DRUGS (14)
  1. LANADELUMAB [Suspect]
     Active Substance: LANADELUMAB
     Indication: Immune system disorder
     Dosage: 300 MILLIGRAM, Q2WEEKS
     Dates: start: 20230228
  2. LANADELUMAB [Suspect]
     Active Substance: LANADELUMAB
  3. LANADELUMAB [Suspect]
     Active Substance: LANADELUMAB
  4. VITAMIN D [Concomitant]
     Active Substance: VITAMIN D NOS
  5. Coq [Concomitant]
  6. UBRELVY [Concomitant]
     Active Substance: UBROGEPANT
  7. CLOPIDOGREL [Concomitant]
     Active Substance: CLOPIDOGREL BISULFATE
  8. ALLOPURINOL [Concomitant]
     Active Substance: ALLOPURINOL
  9. ICATIBANT [Concomitant]
     Active Substance: ICATIBANT ACETATE
  10. LEVOTHYROXINE [Concomitant]
     Active Substance: LEVOTHYROXINE
  11. CRESTOR [Concomitant]
     Active Substance: ROSUVASTATIN CALCIUM
  12. PROCHLORPERAZINE MALEATE [Concomitant]
     Active Substance: PROCHLORPERAZINE MALEATE
  13. CARVEDILOL [Concomitant]
     Active Substance: CARVEDILOL
  14. AMLODIPINE BESYLATE AND BENAZEPRIL HYDROCHLORIDE [Concomitant]
     Active Substance: AMLODIPINE BESYLATE\BENAZEPRIL HYDROCHLORIDE

REACTIONS (15)
  - Internal haemorrhage [Unknown]
  - Myocardial infarction [Unknown]
  - Intestinal haemorrhage [Unknown]
  - Parathyroid tumour benign [Unknown]
  - Application site vesicles [Unknown]
  - Administration site bruise [Unknown]
  - Administration site erythema [Unknown]
  - Stress [Unknown]
  - Illness [Unknown]
  - Contrast media reaction [Unknown]
  - Erythema [Unknown]
  - Haemorrhage [Unknown]
  - Product dose omission issue [Unknown]
  - Neoplasm [Unknown]
  - Hereditary angioedema [Unknown]
